FAERS Safety Report 15576920 (Version 1)
Quarter: 2018Q4

REPORT INFORMATION
  Report Type: Report from Study
  Country: US (occurrence: US)
  Receive Date: 20181101
  Receipt Date: 20181101
  Transmission Date: 20190205
  Serious: Yes (Other)
  Sender: FDA-Public Use
  Company Number: US-GILEAD-2018-0371041

PATIENT
  Age: 76 Year
  Sex: Female

DRUGS (1)
  1. IDELALISIB [Suspect]
     Active Substance: IDELALISIB
     Indication: CHRONIC LYMPHOCYTIC LEUKAEMIA
     Dosage: 100 MG, BID
     Route: 048
     Dates: start: 20170901, end: 20180801

REACTIONS (5)
  - Immobile [Unknown]
  - Nausea [Recovering/Resolving]
  - Pruritus [Recovering/Resolving]
  - Product use issue [Recovered/Resolved]
  - Hepatic failure [Recovering/Resolving]
